FAERS Safety Report 5257567-3 (Version None)
Quarter: 2007Q1

REPORT INFORMATION
  Report Type: 
  Country: None (occurrence: None)
  Receive Date: 20070307
  Receipt Date: 20061213
  Transmission Date: 20070707
  Serious: Yes (Other)
  Sender: FDA-Public Use
  Company Number: US-GLAXOSMITHKLINE-A0620542A

PATIENT
  Age: 36 Year
  Sex: Male

DRUGS (7)
  1. REQUIP [Suspect]
     Indication: RESTLESS LEGS SYNDROME
     Dosage: 1MG TWICE PER DAY
     Route: 048
     Dates: start: 20060101
  2. SUBUTEX [Concomitant]
  3. KLONOPIN [Concomitant]
  4. HUMALOG [Concomitant]
  5. LANTUS [Concomitant]
  6. LEXAPRO [Concomitant]
  7. TOPAMAX [Concomitant]

REACTIONS (2)
  - NAUSEA [None]
  - SUDDEN ONSET OF SLEEP [None]
